FAERS Safety Report 6160025-5 (Version None)
Quarter: 2009Q2

REPORT INFORMATION
  Report Type: 
  Country: None (occurrence: None)
  Receive Date: 20090420
  Receipt Date: 20090414
  Transmission Date: 20091009
  Serious: Yes (Life-Threatening, Other)
  Sender: FDA-Public Use
  Company Number: US-BAYER-200914256NA

PATIENT
  Age: 47 Year
  Sex: Female

DRUGS (5)
  1. AVELOX [Suspect]
     Indication: SINUSITIS
     Route: 048
  2. NEURONTIN [Concomitant]
  3. ULTRAM [Concomitant]
  4. TYLENOL (CAPLET) [Concomitant]
  5. NASACORT AQ [Concomitant]
     Indication: HEADACHE

REACTIONS (9)
  - ANAPHYLACTIC SHOCK [None]
  - DIZZINESS [None]
  - DYSPNOEA [None]
  - EYE PRURITUS [None]
  - LIP SWELLING [None]
  - OEDEMA PERIPHERAL [None]
  - PRURITUS [None]
  - RASH ERYTHEMATOUS [None]
  - SWELLING FACE [None]
